FAERS Safety Report 14702067 (Version 1)
Quarter: 2018Q1

REPORT INFORMATION
  Report Type: Spontaneous
  Country: US (occurrence: US)
  Receive Date: 20180331
  Receipt Date: 20180331
  Transmission Date: 20180509
  Serious: No
  Sender: FDA-Public Use
  Company Number: US-MYLANLABS-2018M1016001

PATIENT
  Sex: Female
  Weight: 72.56 kg

DRUGS (3)
  1. LEVOTHYROXINE. [Concomitant]
     Active Substance: LEVOTHYROXINE
     Indication: HYPOTHYROIDISM
     Dosage: UNK
  2. TRILYTE [Suspect]
     Active Substance: POLYETHYLENE GLYCOL 3350\POTASSIUM CHLORIDE\SODIUM BICARBONATE\SODIUM CHLORIDE
     Indication: COLONOSCOPY
     Dosage: UNK, PRN
     Route: 048
     Dates: start: 20180228
  3. HYDROCHLOROTHIAZIDE. [Concomitant]
     Active Substance: HYDROCHLOROTHIAZIDE
     Indication: PERIPHERAL SWELLING
     Dosage: UNK

REACTIONS (4)
  - Flatulence [Recovering/Resolving]
  - Abdominal discomfort [Recovering/Resolving]
  - Abdominal pain upper [Recovering/Resolving]
  - Nausea [Recovered/Resolved]

NARRATIVE: CASE EVENT DATE: 20180228
